FAERS Safety Report 8838672 (Version 1)
Quarter: 2012Q4

REPORT INFORMATION
  Report Type: 
  Country: NL (occurrence: NL)
  Receive Date: 20121012
  Receipt Date: 20121012
  Transmission Date: 20130627
  Serious: Yes (Hospitalization)
  Sender: FDA-Public Use
  Company Number: NL-PFIZER INC-2012248736

PATIENT
  Sex: Male
  Weight: 77 kg

DRUGS (10)
  1. GENOTROPIN [Suspect]
     Indication: GROWTH HORMONE DEFICIENCY
     Dosage: 0.5 mg, 7/wk
     Route: 058
     Dates: start: 20021118
  2. HYDROCHLOROTHIAZIDE [Concomitant]
     Indication: HYPERTENSION
     Dosage: UNK
  3. TESTOSTERONE [Concomitant]
     Indication: BLOOD LUTEINISING HORMONE DECREASED
     Dosage: UNK
     Dates: start: 20020201
  4. TESTOSTERONE [Concomitant]
     Indication: BLOOD FOLLICLE STIMULATING HORMONE DECREASED
  5. TESTOSTERONE [Concomitant]
     Indication: HYPOGONADISM MALE
  6. CORTISONE ACETATE [Concomitant]
     Indication: BLOOD CORTICOTROPHIN DECREASED
     Dosage: UNK
     Dates: start: 19970901
  7. LEVOTHYROXINE [Concomitant]
     Indication: BLOOD THYROID STIMULATING HORMONE DECREASED
     Dosage: UNK
     Dates: start: 19881001
  8. CALCIUM [Concomitant]
     Indication: CALCIUM METABOLISM DISORDER
     Dosage: UNK
     Dates: start: 19960415
  9. ENALAPRIL [Concomitant]
     Indication: ESSENTIAL HYPERTENSION
     Dosage: UNK
     Dates: start: 20031030
  10. PHENYTOIN [Concomitant]
     Indication: EPILEPSY
     Dosage: UNK
     Dates: start: 19560101

REACTIONS (1)
  - Hyponatraemia [Unknown]
